FAERS Safety Report 20144374 (Version 2)
Quarter: 2021Q4

REPORT INFORMATION
  Report Type: Spontaneous
  Country: US (occurrence: US)
  Receive Date: 20211203
  Receipt Date: 20211210
  Transmission Date: 20220303
  Serious: No
  Sender: FDA-Public Use
  Company Number: US-BEH-2021139058

PATIENT
  Age: 60 Year
  Sex: Female
  Weight: 62.5 kg

DRUGS (2)
  1. PRIVIGEN [Suspect]
     Active Substance: HUMAN IMMUNOGLOBULIN G
     Indication: Myasthenia gravis
     Dosage: 65 GRAM, QMT
     Route: 042
     Dates: start: 20210922, end: 20210922
  2. METHYLPREDNISOLONE [Concomitant]
     Active Substance: METHYLPREDNISOLONE
     Dosage: UNK
     Route: 065
     Dates: start: 20210922, end: 20210922

REACTIONS (4)
  - Urticaria [Unknown]
  - Pruritus [Unknown]
  - Hypersensitivity [Unknown]
  - Chest discomfort [Unknown]
